FAERS Safety Report 21298621 (Version 1)
Quarter: 2022Q3

REPORT INFORMATION
  Report Type: Spontaneous
  Country: US (occurrence: None)
  Receive Date: 20220904
  Receipt Date: 20220904
  Transmission Date: 20221027
  Serious: Yes (Hospitalization)
  Sender: FDA-Public Use
  Company Number: None

PATIENT
  Sex: Female

DRUGS (4)
  1. PULMOZYME [Suspect]
     Active Substance: DORNASE ALFA
     Indication: Cystic fibrosis
     Dosage: OTHER QUANTITY : 2.5MG/2.5ML;?FREQUENCY : DAILY;?
     Route: 055
     Dates: start: 20200226
  2. PULMOZYME [Suspect]
     Active Substance: DORNASE ALFA
     Dosage: OTHER QUANTITY : 2.5ML (2.5MG);?FREQUENCY : DAILY;?
     Route: 055
  3. COMPLETE FORM D5000 SOFT GEL [Concomitant]
  4. TRIKAFTA [Concomitant]
     Active Substance: ELEXACAFTOR\IVACAFTOR\TEZACAFTOR

REACTIONS (1)
  - Blood glucose abnormal [None]
